FAERS Safety Report 15501249 (Version 2)
Quarter: 2019Q1

REPORT INFORMATION
  Report Type: Report from Study
  Country: US (occurrence: US)
  Receive Date: 20181015
  Receipt Date: 20190212
  Transmission Date: 20190417
  Serious: Yes (Other)
  Sender: FDA-Public Use
  Company Number: PHEH2018US043378

PATIENT
  Sex: Female

DRUGS (1)
  1. ENTRESTO [Suspect]
     Active Substance: SACUBITRIL\VALSARTAN
     Indication: PRODUCT USED FOR UNKNOWN INDICATION
     Route: 048

REACTIONS (15)
  - Fungal infection [Unknown]
  - Dyspnoea [Unknown]
  - Chest discomfort [Unknown]
  - Blood glucose decreased [Unknown]
  - Postoperative wound infection [Unknown]
  - Dizziness [Unknown]
  - Chromaturia [Unknown]
  - Chest pain [Unknown]
  - Drug interaction [Unknown]
  - Abdominal pain upper [Unknown]
  - Nausea [Unknown]
  - Dysgeusia [Unknown]
  - Frequent bowel movements [Unknown]
  - Headache [Unknown]
  - Peripheral swelling [Unknown]
